FAERS Safety Report 4577556-1 (Version None)
Quarter: 2005Q1

REPORT INFORMATION
  Report Type: 
  Country: None (occurrence: None)
  Receive Date: 20050208
  Receipt Date: 20050126
  Transmission Date: 20050727
  Serious: Yes (Hospitalization)
  Sender: FDA-Public Use
  Company Number: 2005020966

PATIENT
  Age: 42 Year
  Sex: Male

DRUGS (3)
  1. SULFASALAZINE [Suspect]
     Indication: ILL-DEFINED DISORDER
     Dosage: 20000 MG (500 MG, 1 IN 4 D), ORAL
     Route: 048
     Dates: start: 20030613, end: 20030716
  2. OMEPRAZOLE [Suspect]
     Indication: ILL-DEFINED DISORDER
     Dosage: 1 DOSE FORM (INTERVAL: EVERY DAY), ORAL
     Route: 048
     Dates: start: 20030613, end: 20030716
  3. NAPROXEN [Suspect]
     Indication: ILL-DEFINED DISORDER
     Dosage: 1 DOSE FORM (INTERVAL: EVERY DAY), ORAL
     Route: 048
     Dates: start: 20030613, end: 20030716

REACTIONS (3)
  - CYTOLYTIC HEPATITIS [None]
  - DRUG RASH WITH EOSINOPHILIA AND SYSTEMIC SYMPTOMS [None]
  - RENAL FAILURE [None]
